FAERS Safety Report 14942232 (Version 1)
Quarter: 2018Q2

REPORT INFORMATION
  Report Type: Spontaneous
  Country: PT (occurrence: PT)
  Receive Date: 20180528
  Receipt Date: 20180528
  Transmission Date: 20180711
  Serious: Yes (Other)
  Sender: FDA-Public Use
  Company Number: PT-AMGEN-PRTSP2018070134

PATIENT
  Age: 67 Year
  Sex: Female

DRUGS (4)
  1. LETROZOLE. [Suspect]
     Active Substance: LETROZOLE
     Indication: INVASIVE BREAST CARCINOMA
     Dosage: UNK
     Route: 065
  2. ROSUVASTATIN. [Concomitant]
     Active Substance: ROSUVASTATIN
     Indication: PRODUCT USED FOR UNKNOWN INDICATION
     Dosage: UNK
     Route: 065
  3. LOSARTAN AND HYDROCHLOROTHIAZIDE [Concomitant]
     Active Substance: HYDROCHLOROTHIAZIDE\LOSARTAN POTASSIUM
     Indication: PRODUCT USED FOR UNKNOWN INDICATION
     Dosage: UNK
     Route: 065
  4. PROLIA [Suspect]
     Active Substance: DENOSUMAB
     Indication: INVASIVE BREAST CARCINOMA
     Dosage: UNK
     Route: 065

REACTIONS (3)
  - Chest pain [Unknown]
  - Malignant neoplasm progression [Unknown]
  - Invasive breast carcinoma [Unknown]

NARRATIVE: CASE EVENT DATE: 201501
